FAERS Safety Report 8020544 (Version 6)
Quarter: 2013Q2

REPORT INFORMATION
  Report Type: Spontaneous
  Country: US (occurrence: US)
  Receive Date: 20110705
  Receipt Date: 20130408
  Transmission Date: 20140414
  Serious: Yes (Hospitalization)
  Sender: FDA-Public Use
  Company Number: US-ELI_LILLY_AND_COMPANY-US201105007847

PATIENT
  Age: 73 Year
  Sex: Female

DRUGS (26)
  1. FORTEO [Suspect]
     Indication: OSTEOPOROSIS
     Dosage: 20 UG, QD
     Route: 058
     Dates: start: 20110523
  2. FORTEO [Suspect]
     Dosage: 20 UG, QD
     Route: 058
  3. FORTEO [Suspect]
     Dosage: 20 UG, QD
     Route: 058
  4. FORTEO [Suspect]
     Dosage: 20 UG, QD
     Route: 058
  5. FORTEO [Suspect]
     Dosage: 20 UG, QD
     Route: 058
  6. FORTEO [Suspect]
     Dosage: 20 UG, QD
     Route: 058
  7. FORTEO [Suspect]
     Dosage: 20 UG, QD
     Route: 058
  8. FENTANYL [Concomitant]
     Dosage: 25 UG, OTHER
     Route: 062
  9. OMEPRAZOLE [Concomitant]
     Dosage: 20 MG, BID
  10. AMLODIPINE [Concomitant]
     Dosage: 5 MG, QD
  11. RAMIPRIL [Concomitant]
     Dosage: 2.5 MG, QD
  12. LEVOTHYROXINE [Concomitant]
     Dosage: 0.5 DF, QD
  13. LIOTHYRONINE [Concomitant]
  14. ALBUTEROL [Concomitant]
  15. COMBIVENT [Concomitant]
     Dosage: UNK, BID
  16. HYDROXYCHLOROQUINE [Concomitant]
     Dosage: 200 MG, BID
  17. FOLIC ACID [Concomitant]
     Dosage: 1 MG, OTHER
  18. ADVAIR [Concomitant]
     Dosage: UNK, BID
  19. MULTIVITAMIN [Concomitant]
  20. CALCIUM +VIT D [Concomitant]
     Dosage: UNK, QD
  21. VITAMIN D [Concomitant]
     Dosage: 1000 IU, QD
  22. GABAPENTIN [Concomitant]
     Dosage: 300 MG, QD
  23. LASIX [Concomitant]
     Dosage: 40 MG, UNK
  24. VENTOLIN                                /SCH/ [Concomitant]
     Dosage: UNK, QD
  25. POTASSIUM [Concomitant]
     Dosage: UNK, PRN
  26. ANTISEPTICS [Concomitant]

REACTIONS (24)
  - Cystocele [Unknown]
  - Bladder prolapse [Unknown]
  - Malaise [Unknown]
  - Abdominal discomfort [Not Recovered/Not Resolved]
  - Muscular weakness [Recovering/Resolving]
  - Tremor [Recovered/Resolved]
  - Fear [Recovered/Resolved]
  - Feeling abnormal [Not Recovered/Not Resolved]
  - Drug interaction [Recovered/Resolved]
  - Joint swelling [Unknown]
  - Joint effusion [Unknown]
  - Nodule [Unknown]
  - Arthropathy [Unknown]
  - Pain in extremity [Unknown]
  - Pruritus [Unknown]
  - Corrective lens user [Unknown]
  - Musculoskeletal stiffness [Unknown]
  - Poor quality drug administered [Unknown]
  - Drug dose omission [Unknown]
  - Panic reaction [Unknown]
  - Arthralgia [Unknown]
  - Pain [Unknown]
  - Vomiting [Not Recovered/Not Resolved]
  - Nausea [Not Recovered/Not Resolved]
